FAERS Safety Report 8288515-X (Version None)
Quarter: 2012Q2

REPORT INFORMATION
  Report Type: 
  Country: None (occurrence: None)
  Receive Date: 20120416
  Receipt Date: 20120326
  Transmission Date: 20120825
  Serious: Yes (Hospitalization, Other)
  Sender: FDA-Public Use
  Company Number: US-BAXTER-2012BAX000938

PATIENT
  Sex: Female

DRUGS (6)
  1. DIANEAL PD-2 W/ DEXTROSE 1.5% [Suspect]
  2. DIANEAL PD-2 W/ DEXTROSE 1.5% [Suspect]
     Indication: PERITONEAL DIALYSIS
     Route: 033
  3. DIANEAL PD-2 W/ DEXTROSE 1.5% [Suspect]
     Dosage: NIGHTLY
     Route: 033
  4. DIANEAL PD-2 W/ DEXTROSE 1.5% [Suspect]
  5. DIANEAL PD-2 W/ DEXTROSE 1.5% [Suspect]
  6. DIANEAL PD-2 W/ DEXTROSE 1.5% [Suspect]

REACTIONS (7)
  - WOUND [None]
  - INFECTION [None]
  - PERIPHERAL ARTERIAL OCCLUSIVE DISEASE [None]
  - WOUND INFECTION [None]
  - BLOOD PRESSURE DECREASED [None]
  - PAIN [None]
  - DIARRHOEA [None]
